FAERS Safety Report 6188817-7 (Version None)
Quarter: 2009Q2

REPORT INFORMATION
  Report Type: 
  Country: None (occurrence: None)
  Receive Date: 20090513
  Receipt Date: 20090508
  Transmission Date: 20091009
  Serious: Yes (Other)
  Sender: FDA-Public Use
  Company Number: US-ABBOTT-09P-163-0572304-00

PATIENT
  Sex: Female
  Weight: 90.8 kg

DRUGS (19)
  1. HUMIRA [Suspect]
     Indication: CROHN'S DISEASE
     Route: 058
     Dates: start: 20060101, end: 20081001
  2. HUMIRA [Suspect]
     Route: 058
     Dates: start: 20081001, end: 20081101
  3. HUMIRA [Suspect]
     Dates: start: 20090101
  4. VERAMIST [Concomitant]
     Indication: DRUG USE FOR UNKNOWN INDICATION
  5. CLARITIN REDITABS [Concomitant]
     Indication: DRUG USE FOR UNKNOWN INDICATION
  6. IMODIUM [Concomitant]
     Indication: DRUG USE FOR UNKNOWN INDICATION
  7. LOMOTIL [Concomitant]
     Indication: DRUG USE FOR UNKNOWN INDICATION
  8. OMEPRAZOLE [Concomitant]
     Indication: DRUG USE FOR UNKNOWN INDICATION
  9. AMBIEN CR [Concomitant]
     Indication: DRUG USE FOR UNKNOWN INDICATION
  10. TIZANIDINE HCL [Concomitant]
     Indication: DRUG USE FOR UNKNOWN INDICATION
  11. BYETTA [Concomitant]
     Indication: DRUG USE FOR UNKNOWN INDICATION
  12. HYOMAX [Concomitant]
     Indication: DRUG USE FOR UNKNOWN INDICATION
  13. BENTYL [Concomitant]
     Indication: DRUG USE FOR UNKNOWN INDICATION
  14. FENTANYL [Concomitant]
     Indication: DRUG USE FOR UNKNOWN INDICATION
     Route: 062
  15. IMITREX [Concomitant]
     Indication: DRUG USE FOR UNKNOWN INDICATION
  16. VALTREX [Concomitant]
     Indication: DRUG USE FOR UNKNOWN INDICATION
  17. PHENERGAN [Concomitant]
     Indication: DRUG USE FOR UNKNOWN INDICATION
  18. ALPULENT [Concomitant]
     Indication: DRUG USE FOR UNKNOWN INDICATION
     Route: 055
  19. VITAMIN D [Concomitant]
     Indication: DRUG USE FOR UNKNOWN INDICATION

REACTIONS (11)
  - BRONCHITIS [None]
  - CROHN'S DISEASE [None]
  - ENDOMETRIOSIS [None]
  - FATIGUE [None]
  - HEADACHE [None]
  - INFLUENZA [None]
  - INJECTION SITE HAEMATOMA [None]
  - INJECTION SITE IRRITATION [None]
  - INJECTION SITE PAIN [None]
  - OVARIAN CYST [None]
  - SWELLING FACE [None]
